FAERS Safety Report 20783629 (Version 1)
Quarter: 2022Q2

REPORT INFORMATION
  Report Type: Report from Study
  Country: US (occurrence: US)
  Receive Date: 20220504
  Receipt Date: 20220504
  Transmission Date: 20220721
  Serious: No
  Sender: FDA-Public Use
  Company Number: US-NOVARTISTESTPH-NVSC2022US102414

PATIENT
  Sex: Female

DRUGS (1)
  1. ENTRESTO [Suspect]
     Active Substance: SACUBITRIL\VALSARTAN
     Indication: Nasal dryness
     Dosage: QD
     Route: 048
     Dates: start: 20220501

REACTIONS (1)
  - Nasal dryness [Unknown]

NARRATIVE: CASE EVENT DATE: 20220501
